FAERS Safety Report 7997922-1 (Version None)
Quarter: 2011Q4

REPORT INFORMATION
  Report Type: 
  Country: None (occurrence: None)
  Receive Date: 20111221
  Receipt Date: 20111215
  Transmission Date: 20120403
  Serious: Yes (Other)
  Sender: FDA-Public Use
  Company Number: PHEH2011US00510

PATIENT
  Sex: Male

DRUGS (1)
  1. AREDIA [Suspect]
     Indication: OSTEOPOROSIS

REACTIONS (2)
  - PROSTATE CANCER METASTATIC [None]
  - RETROPERITONEAL LYMPHADENOPATHY [None]
